FAERS Safety Report 4486999-6 (Version None)
Quarter: 2004Q3

REPORT INFORMATION
  Report Type: 
  Country: None (occurrence: None)
  Receive Date: 20040921
  Receipt Date: 20040412
  Transmission Date: 20050211
  Serious: Yes (Death)
  Sender: FDA-Public Use
  Company Number: 163-20785-04040282

PATIENT
  Age: 57 Year
  Sex: Male

DRUGS (1)
  1. THALOMID [Suspect]
     Indication: RENAL CELL CARCINOMA STAGE UNSPECIFIED
     Dosage: 400 MG, GHS, ORAL
     Route: 048
     Dates: start: 20030717, end: 20040112

REACTIONS (3)
  - DEATH [None]
  - DISEASE PROGRESSION [None]
  - METASTASES TO LIVER [None]
